FAERS Safety Report 12178423 (Version 1)
Quarter: 2016Q1

REPORT INFORMATION
  Report Type: Spontaneous
  Country: US (occurrence: US)
  Receive Date: 20160314
  Receipt Date: 20160314
  Transmission Date: 20160526
  Serious: No
  Sender: FDA-Public Use
  Company Number: US-SA-2015SA217060

PATIENT
  Age: 68 Year
  Sex: Female

DRUGS (4)
  1. TOUJEO [Suspect]
     Active Substance: INSULIN GLARGINE
     Dosage: DOSE:28 UNIT(S)
     Route: 065
     Dates: start: 201512
  2. SOLOSTAR [Concomitant]
     Active Substance: DEVICE
     Dates: start: 201512
  3. SOLOSTAR [Concomitant]
     Active Substance: DEVICE
     Dates: start: 2005, end: 2015
  4. LANTUS SOLOSTAR [Concomitant]
     Active Substance: INSULIN GLARGINE
     Dosage: DOSE:24 UNIT(S)
     Dates: start: 2005, end: 2015

REACTIONS (3)
  - Injection site induration [Unknown]
  - Injection site pain [Unknown]
  - Injury associated with device [Unknown]
